FAERS Safety Report 10242462 (Version 2)
Quarter: 2014Q3

REPORT INFORMATION
  Report Type: Report from Study
  Country: PR (occurrence: US)
  Receive Date: 20140617
  Receipt Date: 20140701
  Transmission Date: 20150326
  Serious: Yes (Death, Hospitalization)
  Sender: FDA-Public Use
  Company Number: PR-ACTELION-A-US2014-100094

PATIENT
  Age: 70 Year
  Sex: Female

DRUGS (1)
  1. TRACLEER [Suspect]
     Active Substance: BOSENTAN\BOSENTAN MONOHYDRATE
     Indication: PULMONARY HYPERTENSION
     Dosage: UNK
     Route: 048

REACTIONS (5)
  - Renal disorder [Unknown]
  - Death [Fatal]
  - Decreased activity [Unknown]
  - Condition aggravated [Unknown]
  - Lethargy [Unknown]

NARRATIVE: CASE EVENT DATE: 20140506
